FAERS Safety Report 6896938-6 (Version None)
Quarter: 2010Q3

REPORT INFORMATION
  Report Type: 
  Country: None (occurrence: None)
  Receive Date: 20100802
  Receipt Date: 20070321
  Transmission Date: 20110219
  Serious: No
  Sender: FDA-Public Use
  Company Number: US-PFIZER INC-2007023256

PATIENT
  Sex: Female

DRUGS (2)
  1. LYRICA [Suspect]
     Indication: NEURALGIA
     Dosage: 50MG TO 300MG PER DAY
     Dates: start: 20060301
  2. LIDODERM [Concomitant]
     Indication: NEURALGIA

REACTIONS (2)
  - CONFUSIONAL STATE [None]
  - LETHARGY [None]
